FAERS Safety Report 21666747 (Version 1)
Quarter: 2022Q4

REPORT INFORMATION
  Report Type: Spontaneous
  Country: US (occurrence: US)
  Receive Date: 20221201
  Receipt Date: 20221201
  Transmission Date: 20230113
  Serious: Yes (Hospitalization)
  Sender: FDA-Public Use
  Company Number: US-TEVA-2022-US-2830322

PATIENT
  Age: 50 Year
  Sex: Male

DRUGS (1)
  1. TESTOSTERONE [Suspect]
     Active Substance: TESTOSTERONE
     Indication: Hypogonadism male
     Route: 030

REACTIONS (3)
  - Pyomyositis [Recovered/Resolved]
  - Tachycardia [Recovered/Resolved]
  - Abscess [Recovered/Resolved]
